FAERS Safety Report 11538020 (Version 1)
Quarter: 2015Q3

REPORT INFORMATION
  Report Type: Report from Study
  Country: CA (occurrence: CA)
  Receive Date: 20150922
  Receipt Date: 20150922
  Transmission Date: 20151125
  Serious: Yes (Death)
  Sender: FDA-Public Use
  Company Number: CA-CELGENE-CAN-2015093325

PATIENT
  Sex: Female

DRUGS (1)
  1. POMALYST [Suspect]
     Active Substance: POMALIDOMIDE
     Indication: PLASMA CELL MYELOMA
     Route: 048
     Dates: start: 201407, end: 201411

REACTIONS (7)
  - Thrombocytopenia [Unknown]
  - Infection [Unknown]
  - Death [Fatal]
  - Anaemia [Unknown]
  - Neutropenia [Unknown]
  - Plasma cell myeloma [Unknown]
  - Fatigue [Unknown]
